FAERS Safety Report 6328881-5 (Version None)
Quarter: 2009Q3

REPORT INFORMATION
  Report Type: 
  Country: None (occurrence: None)
  Receive Date: 20090824
  Receipt Date: 20090824
  Transmission Date: 20100115
  Serious: No
  Sender: FDA-Public Use
  Company Number: None

PATIENT
  Age: 52 Year
  Sex: Female
  Weight: 68.0396 kg

DRUGS (1)
  1. ZICAM NO-DRIP LIQUID NASAL GEL [Suspect]
     Indication: NASOPHARYNGITIS
     Dosage: .50 FLUID OUNCE ONC NASAL
     Route: 045
     Dates: start: 20041216, end: 20041216

REACTIONS (3)
  - ANOSMIA [None]
  - PAIN [None]
  - PAROSMIA [None]
